FAERS Safety Report 9378484 (Version 2)
Quarter: 2013Q3

REPORT INFORMATION
  Report Type: Spontaneous
  Country: IT (occurrence: IT)
  Receive Date: 20130702
  Receipt Date: 20130806
  Transmission Date: 20140515
  Serious: Yes (Life-Threatening, Hospitalization)
  Sender: FDA-Public Use
  Company Number: IT-ROCHE-1242788

PATIENT
  Age: 63 Year
  Sex: Male

DRUGS (4)
  1. VESANOID [Suspect]
     Indication: ACUTE PROMYELOCYTIC LEUKAEMIA
     Route: 048
     Dates: start: 20130124, end: 20130211
  2. IDARUBICIN [Suspect]
     Indication: ACUTE PROMYELOCYTIC LEUKAEMIA
     Route: 042
     Dates: start: 20130129, end: 20130202
  3. ATRA [Concomitant]
  4. ZEFFIX [Concomitant]
     Route: 048

REACTIONS (3)
  - Respiratory failure [Recovering/Resolving]
  - Infarction [Recovering/Resolving]
  - Lung infiltration [Recovering/Resolving]
